FAERS Safety Report 8320516-5 (Version None)
Quarter: 2012Q2

REPORT INFORMATION
  Report Type: 
  Country: None (occurrence: None)
  Receive Date: 20120427
  Receipt Date: 20120427
  Transmission Date: 20120825
  Serious: Yes (Hospitalization)
  Sender: FDA-Public Use
  Company Number: None

PATIENT
  Age: 53 Year
  Sex: Male
  Weight: 52.2 kg

DRUGS (3)
  1. REVLIMID [Suspect]
     Indication: MULTIPLE MYELOMA
     Dosage: REVLIMID 25 MG
     Route: 048
     Dates: start: 20120214, end: 20120423
  2. DEXAMETHASONE [Suspect]
     Dosage: DECADRON 40MG
  3. DALTEPARIN SODIUM [Concomitant]
     Indication: THROMBOSIS PROPHYLAXIS
     Dosage: DALTEPARIN 10,000 U
     Route: 058
     Dates: start: 20120131, end: 20120730

REACTIONS (7)
  - VOMITING [None]
  - PYREXIA [None]
  - NAUSEA [None]
  - DECREASED APPETITE [None]
  - CHILLS [None]
  - NASOPHARYNGITIS [None]
  - PRODUCTIVE COUGH [None]
